FAERS Safety Report 6077095-5 (Version None)
Quarter: 2009Q1

REPORT INFORMATION
  Report Type: 
  Country: None (occurrence: None)
  Receive Date: 20090213
  Receipt Date: 20090204
  Transmission Date: 20090719
  Serious: Yes (Disabling, Other)
  Sender: FDA-Public Use
  Company Number: PHEH2009US01421

PATIENT
  Sex: Female

DRUGS (3)
  1. RECLAST [Suspect]
     Dosage: UNK
     Dates: start: 20081124
  2. FOSAMAX [Suspect]
  3. RADIATION THERAPY [Concomitant]

REACTIONS (9)
  - ABASIA [None]
  - ARTHRALGIA [None]
  - BONE PAIN [None]
  - HIP ARTHROPLASTY [None]
  - JAW DISORDER [None]
  - MALAISE [None]
  - MYALGIA [None]
  - NEOPLASM MALIGNANT [None]
  - PAIN IN EXTREMITY [None]
